FAERS Safety Report 7208446-3 (Version None)
Quarter: 2011Q1

REPORT INFORMATION
  Report Type: 
  Country: None (occurrence: None)
  Receive Date: 20110104
  Receipt Date: 20101228
  Transmission Date: 20110831
  Serious: Yes (Hospitalization)
  Sender: FDA-Public Use
  Company Number: FR-PFIZER INC-2010179930

PATIENT
  Age: 74 Year
  Sex: Male

DRUGS (11)
  1. CORDARONE [Suspect]
     Dosage: 200 MG, 1 DOSAGE FORM FIVE DAYS OUT OF A WEEK
     Route: 048
     Dates: start: 20061101, end: 20101129
  2. METFORMIN [Concomitant]
     Dosage: 850 MG, 3X/DAY
     Dates: start: 20101129
  3. TAHOR [Suspect]
     Dosage: 10 MG, 1X/DAY
     Route: 048
     Dates: start: 20060801
  4. AMLOR [Concomitant]
     Dosage: 10 ONCE PER DAY
  5. GLYBURIDE [Concomitant]
     Dosage: 5 MG, 3X/DAY
  6. BIPRETERAX [Concomitant]
     Dosage: 2 DF, 2X/DAY
  7. HEMIGOXINE NATIVELLE [Concomitant]
     Dosage: 0.25 UNK, 1X/DAY
  8. PREVISCAN [Concomitant]
     Dosage: 20 MG
  9. METFORMIN [Concomitant]
     Dosage: 1000 MG, 3X/DAY
  10. HEMIGOXINE NATIVELLE [Concomitant]
     Dosage: 0.125 UNK, 1X/DAY
  11. TAHOR [Suspect]
     Dosage: 40 MG, 1X/DAY
     Route: 048
     Dates: end: 20101129

REACTIONS (1)
  - INTERSTITIAL LUNG DISEASE [None]
